FAERS Safety Report 20981894 (Version 1)
Quarter: 2022Q2

REPORT INFORMATION
  Report Type: Spontaneous
  Country: US (occurrence: US)
  Receive Date: 20220620
  Receipt Date: 20220620
  Transmission Date: 20220721
  Serious: No
  Sender: FDA-Public Use
  Company Number: US-PFIZER INC-202200846239

PATIENT
  Age: 53 Year
  Sex: Female

DRUGS (3)
  1. PAXLOVID [Suspect]
     Active Substance: NIRMATRELVIR\RITONAVIR
     Indication: COVID-19 treatment
     Dosage: UNK
     Dates: start: 20220601, end: 20220605
  2. FLUOXETINE HYDROCHLORIDE [Concomitant]
     Active Substance: FLUOXETINE HYDROCHLORIDE
     Dosage: UNK
     Dates: start: 20210103, end: 20220616
  3. OXYCODONE [Concomitant]
     Active Substance: OXYCODONE
     Dosage: UNK
     Dates: start: 20210101, end: 20220116

REACTIONS (2)
  - COVID-19 [Not Recovered/Not Resolved]
  - Disease recurrence [Not Recovered/Not Resolved]

NARRATIVE: CASE EVENT DATE: 20220611
